FAERS Safety Report 5409496-X (Version None)
Quarter: 2007Q3

REPORT INFORMATION
  Report Type: 
  Country: None (occurrence: None)
  Receive Date: 20070807
  Receipt Date: 20070807
  Transmission Date: 20080115
  Serious: No
  Sender: FDA-Public Use
  Company Number: None

PATIENT
  Age: 34 Year
  Sex: Female
  Weight: 58.9676 kg

DRUGS (1)
  1. PREVAGE MD [Suspect]
     Indication: SKIN WRINKLING
     Dosage: CUTANEOUS
     Route: 003
     Dates: start: 20070802, end: 20070803

REACTIONS (1)
  - DERMATITIS CONTACT [None]
